FAERS Safety Report 14010618 (Version 1)
Quarter: 2017Q3

REPORT INFORMATION
  Report Type: Spontaneous
  Country: US (occurrence: US)
  Receive Date: 20170926
  Receipt Date: 20170926
  Transmission Date: 20171128
  Serious: No
  Sender: FDA-Public Use
  Company Number: US-BRISTOL-MYERS SQUIBB COMPANY-BMS-2017-085614

PATIENT
  Age: 69 Year
  Sex: Male
  Weight: 104.31 kg

DRUGS (1)
  1. ELIQUIS [Suspect]
     Active Substance: APIXABAN
     Indication: TACHYCARDIA
     Dosage: 5 MG, BID
     Route: 048

REACTIONS (4)
  - Lethargy [Unknown]
  - Depression [Unknown]
  - Fatigue [Unknown]
  - Product use in unapproved indication [Unknown]
